FAERS Safety Report 8402874-6 (Version None)
Quarter: 2012Q2

REPORT INFORMATION
  Report Type: 
  Country: None (occurrence: None)
  Receive Date: 20120601
  Receipt Date: 20120522
  Transmission Date: 20120825
  Serious: Yes (Other)
  Sender: FDA-Public Use
  Company Number: JP-BAYER-2012-037736

PATIENT
  Sex: Male

DRUGS (2)
  1. ASPIRIN [Suspect]
     Indication: CEREBRAL INFARCTION
     Route: 048
  2. ASPIRIN [Suspect]
     Indication: HYPERTENSION

REACTIONS (3)
  - FAECES DISCOLOURED [None]
  - DUODENAL ULCER HAEMORRHAGE [None]
  - ANAEMIA [None]
